FAERS Safety Report 25328020 (Version 1)
Quarter: 2025Q2

REPORT INFORMATION
  Report Type: Spontaneous
  Country: US (occurrence: US)
  Receive Date: 20250518
  Receipt Date: 20250518
  Transmission Date: 20250716
  Serious: No
  Sender: SANOFI AVENTIS
  Company Number: US-SA-2025SA141216

PATIENT
  Sex: Male

DRUGS (7)
  1. DUPIXENT [Suspect]
     Active Substance: DUPILUMAB
     Indication: Dermatitis atopic
     Dosage: 200 MG, QOW
     Route: 058
     Dates: start: 20240517
  2. CLOBETASOL [Concomitant]
     Active Substance: CLOBETASOL
  3. FLUOCINOLONE ACET [Concomitant]
  4. HYDROCORT [HYDROCORTISONE] [Concomitant]
  5. MUPIROCIN [Concomitant]
     Active Substance: MUPIROCIN
  6. TACROLIMUS [Concomitant]
     Active Substance: TACROLIMUS
  7. TERBINAFINE [Concomitant]
     Active Substance: TERBINAFINE

REACTIONS (3)
  - Lacrimation increased [Unknown]
  - Sleep disorder due to a general medical condition [Unknown]
  - Eye irritation [Unknown]

NARRATIVE: CASE EVENT DATE: 20250501
